FAERS Safety Report 10515454 (Version 1)
Quarter: 2014Q4

REPORT INFORMATION
  Report Type: Spontaneous
  Country: PT (occurrence: None)
  Receive Date: 20141009
  Receipt Date: 20141009
  Transmission Date: 20150528
  Serious: Yes (Other)
  Sender: FDA-Public Use
  Company Number: PT-DEXPHARM-20140638

PATIENT
  Age: 39 Year
  Sex: Female

DRUGS (9)
  1. PANTOPRAZOLE [Concomitant]
     Active Substance: PANTOPRAZOLE SODIUM
     Route: 048
  2. LANSOPRAZOLE. [Suspect]
     Active Substance: LANSOPRAZOLE
     Route: 048
  3. RABEPRAZOLE [Suspect]
     Active Substance: RABEPRAZOLE
     Route: 048
  4. IBUPROFEN. [Concomitant]
     Active Substance: IBUPROFEN
  5. OMEPRAZOLE (OMEPRAZOLE) [Suspect]
     Active Substance: OMEPRAZOLE
     Route: 048
     Dates: start: 2007
  6. ESOMEPRAZOLE [Suspect]
     Active Substance: ESOMEPRAZOLE
     Route: 048
  7. DESLORATIDINE [Concomitant]
  8. ASPIRIN. [Concomitant]
     Active Substance: ASPIRIN
  9. PARACETAMOL [Concomitant]
     Active Substance: ACETAMINOPHEN

REACTIONS (6)
  - Angioedema [None]
  - Gastrooesophageal reflux disease [None]
  - Type IV hypersensitivity reaction [None]
  - Dermatitis bullous [None]
  - Generalised erythema [None]
  - Pruritus [None]
